FAERS Safety Report 11493314 (Version 2)
Quarter: 2017Q2

REPORT INFORMATION
  Report Type: Spontaneous
  Country: IE (occurrence: IE)
  Receive Date: 20150911
  Receipt Date: 20170616
  Transmission Date: 20170829
  Serious: Yes (Hospitalization, Other)
  Sender: FDA-Public Use
  Company Number: IE-LUPIN PHARMACEUTICALS INC.-2015-02712

PATIENT
  Age: 64 Year
  Sex: Female

DRUGS (3)
  1. CALCIUM [Suspect]
     Active Substance: CALCIUM
     Indication: SUPPLEMENTATION THERAPY
     Dosage: UNK UNK, QD
     Route: 065
  2. VITAMIN D [Suspect]
     Active Substance: CHOLECALCIFEROL
     Indication: SUPPLEMENTATION THERAPY
  3. VITAMIN D [Suspect]
     Active Substance: CHOLECALCIFEROL
     Indication: FEMORAL NECK FRACTURE
     Dosage: 300000 IU, UNK
     Route: 051

REACTIONS (1)
  - Calciphylaxis [Recovered/Resolved]
